FAERS Safety Report 21263076 (Version 1)
Quarter: 2022Q3

REPORT INFORMATION
  Report Type: Spontaneous
  Country: US (occurrence: None)
  Receive Date: 20220827
  Receipt Date: 20220827
  Transmission Date: 20221027
  Serious: No
  Sender: FDA-Public Use
  Company Number: None

PATIENT
  Age: 65 Year
  Sex: Female

DRUGS (1)
  1. PAXLOVID [Suspect]
     Active Substance: NIRMATRELVIR\RITONAVIR
     Indication: COVID-19
     Dates: start: 20220726, end: 20220810

REACTIONS (3)
  - Product dispensing error [None]
  - Circumstance or information capable of leading to medication error [None]
  - Wrong dose [None]

NARRATIVE: CASE EVENT DATE: 20220726
